FAERS Safety Report 13076450 (Version 2)
Quarter: 2017Q1

REPORT INFORMATION
  Report Type: Spontaneous
  Country: US (occurrence: US)
  Receive Date: 20161230
  Receipt Date: 20170202
  Transmission Date: 20170428
  Serious: Yes (Other)
  Sender: FDA-Public Use
  Company Number: US-SUPERNUS PHARMACEUTICALS, INC.-2016SUP00206

PATIENT
  Age: 18 Year
  Sex: Male
  Weight: 72.56 kg

DRUGS (8)
  1. OXTELLAR XR [Suspect]
     Active Substance: OXCARBAZEPINE
     Indication: SEIZURE
     Dosage: 1800 MG, DAILY
     Dates: start: 2013
  2. OXTELLAR XR [Suspect]
     Active Substance: OXCARBAZEPINE
     Dosage: 300 MG, 1X/DAY
     Route: 048
     Dates: start: 201609, end: 201612
  3. OXTELLAR XR [Suspect]
     Active Substance: OXCARBAZEPINE
     Dosage: 2400MG, 1X/DAY
     Route: 048
  4. OXTELLAR XR [Suspect]
     Active Substance: OXCARBAZEPINE
     Dosage: 2400 MG, 1X/DAY
     Route: 048
     Dates: start: 201609, end: 201612
  5. OXTELLAR XR [Suspect]
     Active Substance: OXCARBAZEPINE
     Indication: SEIZURE
     Dosage: 300 MG, 1X/DAY
     Route: 048
  6. CLONAZEPAM. [Concomitant]
     Active Substance: CLONAZEPAM
     Indication: SEIZURE
     Dosage: 0.25 MG, 2X/DAY
     Dates: start: 201609, end: 20161211
  7. CLONAZEPAM. [Concomitant]
     Active Substance: CLONAZEPAM
     Dosage: 0.75 MG, DAILY
     Dates: start: 201612
  8. OXTELLAR XR [Suspect]
     Active Substance: OXCARBAZEPINE
     Dosage: 3000 MG, DAILY
     Dates: start: 20160516, end: 201609

REACTIONS (8)
  - Prescribed overdose [Recovered/Resolved]
  - Complex partial seizures [Unknown]
  - Rash [Recovered/Resolved]
  - Vomiting [Recovered/Resolved]
  - Generalised tonic-clonic seizure [Unknown]
  - Drug level below therapeutic [Unknown]
  - Headache [Unknown]
  - Hyponatraemia [Recovered/Resolved]

NARRATIVE: CASE EVENT DATE: 2014
